FAERS Safety Report 7893979-7 (Version None)
Quarter: 2011Q4

REPORT INFORMATION
  Report Type: 
  Country: None (occurrence: None)
  Receive Date: 20111104
  Receipt Date: 20111031
  Transmission Date: 20120403
  Serious: Yes (Other)
  Sender: FDA-Public Use
  Company Number: JP-PFIZER INC-2011247402

PATIENT
  Age: 76 Year
  Sex: Male
  Weight: 55.7 kg

DRUGS (10)
  1. CANDESARTAN CILEXETIL [Concomitant]
     Dosage: UNK
     Route: 048
  2. LANSOPRAZOLE [Concomitant]
     Dosage: UNK
     Route: 048
  3. SUNITINIB MALATE [Suspect]
     Dosage: 25 MG, 1X/DAY
     Route: 048
     Dates: start: 20110107, end: 20110120
  4. LASIX [Concomitant]
     Dosage: UNK
     Route: 048
  5. SUNITINIB MALATE [Suspect]
     Indication: RENAL CELL CARCINOMA
     Dosage: 50 MG, 1X/DAY
     Route: 048
     Dates: start: 20090617, end: 20090701
  6. CONIEL [Concomitant]
     Dosage: UNK
     Route: 048
  7. ASPARA [Concomitant]
     Dosage: UNK
     Route: 048
  8. CORTRIL [Concomitant]
     Dosage: 15 MG, 2X/DAY
     Route: 048
  9. CARVEDILOL [Concomitant]
     Dosage: UNK
     Route: 048
  10. SUNITINIB MALATE [Suspect]
     Dosage: 25 MG, 1X/DAY
     Dates: start: 20110211, end: 20110224

REACTIONS (2)
  - GASTRIC CANCER [None]
  - NEOPLASM MALIGNANT [None]
